FAERS Safety Report 14572948 (Version 1)
Quarter: 2018Q1

REPORT INFORMATION
  Report Type: Spontaneous
  Country: RU (occurrence: RU)
  Receive Date: 20180226
  Receipt Date: 20180226
  Transmission Date: 20180509
  Serious: Yes (Hospitalization)
  Sender: FDA-Public Use
  Company Number: RU-SA-2017SA253114

PATIENT
  Age: 70 Year
  Sex: Female
  Weight: 70 kg

DRUGS (11)
  1. MEXIDOL [Concomitant]
     Indication: CORONARY ARTERY DISEASE
     Dosage: 125 MG BY 1 T. * 3T / DAY, COURSES (1 MONTH ADMISSION, 1 MONTH BREAK)
     Route: 048
  2. AMLODIPINE [Concomitant]
     Active Substance: AMLODIPINE BESYLATE
     Indication: HYPERTENSION
     Dosage: 10 MG OF 1 TABLET * 1T/ DAY (AT NIGHT)
     Route: 048
  3. AMARYL [Suspect]
     Active Substance: GLIMEPIRIDE
     Indication: TYPE 2 DIABETES MELLITUS
     Dosage: DOSE : 4 MG, 1 TABLET 2 T/D
     Route: 048
     Dates: start: 20171212
  4. AMARYL [Suspect]
     Active Substance: GLIMEPIRIDE
     Indication: TYPE 2 DIABETES MELLITUS
     Dosage: DOSE- 4 MG OF 1.5 TABLET
     Route: 048
     Dates: start: 2014, end: 20171212
  5. CREON [Concomitant]
     Active Substance: PANCRELIPASE AMYLASE\PANCRELIPASE LIPASE\PANCRELIPASE PROTEASE
     Indication: PANCREATITIS CHRONIC
     Route: 048
  6. SIOFOR [Concomitant]
     Active Substance: METFORMIN HYDROCHLORIDE
     Indication: TYPE 2 DIABETES MELLITUS
     Dosage: 850 MG 1 TAB. (MORNING) + 1 TABLET (LUNCH) + 1 TABLET (EVENING)
     Route: 048
  7. LOZAP [Concomitant]
     Indication: HYPERTENSION
     Dosage: 100 MG OF 1 TABLET * 1T / DAY (MORNING)
     Route: 048
  8. COSOPT [Concomitant]
     Active Substance: DORZOLAMIDE HYDROCHLORIDE\TIMOLOL MALEATE
     Indication: GLAUCOMA
     Dosage: ML OF 1 CAP. * 2T / DAY IN BOTH EYES
  9. EMOXYPINE [Concomitant]
     Indication: GLAUCOMA
     Dosage: 1% 5 ML OF 1 CAP. * 6 T / DAY IN BOTH EYES
  10. CARDIOMAGNYL [Concomitant]
     Active Substance: ASPIRIN\MAGNESIUM HYDROXIDE
     Indication: CORONARY ARTERY DISEASE
     Dosage: 150 MG OF 1 TABLET. * 1T / DAY (AT NIGHT)
     Route: 048
  11. CONCOR COR [Concomitant]
     Active Substance: BISOPROLOL FUMARATE
     Indication: HYPERTENSION
     Dosage: 2.5 MG 1 TABLET. * 2T/ DAY (MORNING, EVENING)
     Route: 048

REACTIONS (2)
  - Blood glucose increased [Unknown]
  - Hyperglycaemia [Not Recovered/Not Resolved]

NARRATIVE: CASE EVENT DATE: 20171212
